FAERS Safety Report 24393939 (Version 2)
Quarter: 2024Q4

REPORT INFORMATION
  Report Type: Spontaneous
  Country: PT (occurrence: PT)
  Receive Date: 20241003
  Receipt Date: 20241004
  Transmission Date: 20250115
  Serious: Yes (Other)
  Sender: MERCK
  Company Number: PT-009507513-2410PRT000467

PATIENT
  Age: 71 Year

DRUGS (1)
  1. PEMBROLIZUMAB [Suspect]
     Active Substance: PEMBROLIZUMAB
     Indication: Lung adenocarcinoma stage IV

REACTIONS (3)
  - Renal impairment [Unknown]
  - Tubulointerstitial nephritis [Recovering/Resolving]
  - Pneumonitis [Recovering/Resolving]
